FAERS Safety Report 6461048-9 (Version None)
Quarter: 2009Q4

REPORT INFORMATION
  Report Type: 
  Country: None (occurrence: None)
  Receive Date: 20091130
  Receipt Date: 20091119
  Transmission Date: 20100525
  Serious: Yes (Hospitalization)
  Sender: FDA-Public Use
  Company Number: B0599258A

PATIENT
  Sex: Female
  Weight: 67 kg

DRUGS (4)
  1. ZELITREX [Suspect]
     Indication: ANTIVIRAL PROPHYLAXIS
     Dosage: 500MG TWICE PER DAY
     Route: 048
     Dates: start: 20010101
  2. LEVOTHYROXINE SODIUM [Concomitant]
     Indication: HYPOTHYROIDISM
     Dosage: 50MCG PER DAY
     Route: 065
     Dates: start: 19940101
  3. CRESTOR [Concomitant]
     Indication: CEREBROVASCULAR ACCIDENT
     Dosage: 5MG PER DAY
     Route: 048
     Dates: start: 20070801
  4. KARDEGIC 160 [Concomitant]
     Indication: CEREBROVASCULAR ACCIDENT
     Dosage: 160MG PER DAY
     Route: 048
     Dates: start: 20070801

REACTIONS (9)
  - AREFLEXIA [None]
  - BALANCE DISORDER [None]
  - BLOOD IMMUNOGLOBULIN M INCREASED [None]
  - DYSSTASIA [None]
  - HYPOGAMMAGLOBULINAEMIA [None]
  - OFF LABEL USE [None]
  - PAIN IN EXTREMITY [None]
  - PARAESTHESIA [None]
  - PERIPHERAL SENSORY NEUROPATHY [None]
